FAERS Safety Report 9973494 (Version 2)
Quarter: 2014Q2

REPORT INFORMATION
  Report Type: Spontaneous
  Country: US (occurrence: US)
  Receive Date: 20140306
  Receipt Date: 20140421
  Transmission Date: 20141212
  Serious: Yes (Disabling)
  Sender: FDA-Public Use
  Company Number: US-PFIZER INC-2014064499

PATIENT
  Age: 63 Year
  Sex: Male
  Weight: 72.56 kg

DRUGS (1)
  1. DILANTIN [Suspect]
     Indication: CONVULSION
     Dosage: UNK
     Route: 048
     Dates: start: 1998

REACTIONS (2)
  - Nerve injury [Unknown]
  - Asthenia [Unknown]
